FAERS Safety Report 14560536 (Version 1)
Quarter: 2018Q1

REPORT INFORMATION
  Report Type: Spontaneous
  Country: US (occurrence: US)
  Receive Date: 20180222
  Receipt Date: 20180222
  Transmission Date: 20180509
  Serious: No
  Sender: FDA-Public Use
  Company Number: US-JNJFOC-20180212605

PATIENT
  Sex: Female

DRUGS (9)
  1. TOPAMAX [Suspect]
     Active Substance: TOPIRAMATE
     Indication: WEIGHT DECREASED
     Route: 048
     Dates: start: 2017
  2. OXYCODONE [Concomitant]
     Active Substance: OXYCODONE
     Dosage: 10 /325 MG EVERY 6 HOURS
     Route: 065
  3. PHENTERMINE. [Concomitant]
     Active Substance: PHENTERMINE
     Indication: WEIGHT DECREASED
     Route: 065
     Dates: start: 20171108
  4. GABAPENTIN. [Concomitant]
     Active Substance: GABAPENTIN
     Route: 065
  5. ROPINIROLE. [Concomitant]
     Active Substance: ROPINIROLE
     Indication: PAIN
     Route: 065
  6. ALBUTEROL. [Concomitant]
     Active Substance: ALBUTEROL
     Indication: CHEST DISCOMFORT
     Route: 065
  7. METHOCARBAMOL. [Concomitant]
     Active Substance: METHOCARBAMOL
     Route: 065
  8. FLOVENT [Concomitant]
     Active Substance: FLUTICASONE PROPIONATE
     Indication: CHEST DISCOMFORT
     Dosage: 2 PUFF TWICE A DAY
     Route: 065
  9. HYDROXYZINE [Concomitant]
     Active Substance: HYDROXYZINE HYDROCHLORIDE
     Indication: PRURITUS
     Route: 065

REACTIONS (3)
  - Product use in unapproved indication [Unknown]
  - Drug ineffective for unapproved indication [Unknown]
  - Off label use [Unknown]

NARRATIVE: CASE EVENT DATE: 2017
